FAERS Safety Report 7134015-X (Version None)
Quarter: 2010Q4

REPORT INFORMATION
  Report Type: 
  Country: None (occurrence: None)
  Receive Date: 20101117
  Receipt Date: 20100804
  Transmission Date: 20110411
  Serious: Yes (Other)
  Sender: FDA-Public Use
  Company Number: 2010-3800

PATIENT
  Sex: Female

DRUGS (2)
  1. LANREOTIDE ACETATE NOS (LANREOTIDE) (LANREOTIDE ACETATE) [Suspect]
     Indication: ACROMEGALY
     Dosage: 1 IN 1 M
  2. DOPAMINE AGONIST (BROMOCRIPTINE OR CABERGOLINE OR QUINAGOLIDE) (ALL OT [Concomitant]

REACTIONS (3)
  - DRUG EXPOSURE DURING PREGNANCY [None]
  - PRE-ECLAMPSIA [None]
  - PREGNANCY [None]
